FAERS Safety Report 9535408 (Version 1)
Quarter: 2013Q3

REPORT INFORMATION
  Report Type: Spontaneous
  Country: US (occurrence: US)
  Receive Date: 20130918
  Receipt Date: 20130918
  Transmission Date: 20140515
  Serious: Yes (Death)
  Sender: FDA-Public Use
  Company Number: US-FRI-1000048809

PATIENT
  Age: 59 Year
  Sex: Male

DRUGS (18)
  1. LINZESS [Suspect]
     Indication: ABDOMINAL PAIN
     Dosage: 290 MCG
     Dates: end: 20130911
  2. LINZESS [Suspect]
     Indication: CONSTIPATION
  3. ASPIRIN [Concomitant]
  4. LIPITOR [Concomitant]
  5. COREG [Concomitant]
  6. SENNA [Concomitant]
  7. VITAMIN D [Concomitant]
  8. IRON [Concomitant]
  9. ISOSORBIDE [Concomitant]
  10. LASIX [Concomitant]
  11. AMBIEN [Concomitant]
  12. DIGOXIN [Concomitant]
  13. LYRICA [Concomitant]
  14. LANTUS [Concomitant]
  15. NOVOLOG [Concomitant]
  16. PRILOSEC [Concomitant]
  17. PLAVIX [Concomitant]
  18. LEXAPRO [Concomitant]

REACTIONS (1)
  - Death [Fatal]
